FAERS Safety Report 5276648-1 (Version None)
Quarter: 2007Q1

REPORT INFORMATION
  Report Type: 
  Country: None (occurrence: None)
  Receive Date: 20070327
  Receipt Date: 20070322
  Transmission Date: 20070707
  Serious: Yes (Hospitalization)
  Sender: FDA-Public Use
  Company Number: FR-BRISTOL-MYERS SQUIBB COMPANY-13724901

PATIENT
  Age: 63 Year
  Sex: Male

DRUGS (3)
  1. IRBESARTAN [Suspect]
     Route: 048
     Dates: start: 20060515
  2. XATRAL LP [Suspect]
  3. ATHYMIL [Concomitant]

REACTIONS (3)
  - LOSS OF CONSCIOUSNESS [None]
  - MALAISE [None]
  - MYOCLONUS [None]
